FAERS Safety Report 16711421 (Version 2)
Quarter: 2019Q3

REPORT INFORMATION
  Report Type: Report from Study
  Country: US (occurrence: US)
  Receive Date: 20190816
  Receipt Date: 20190822
  Transmission Date: 20191004
  Serious: Yes (Other)
  Sender: FDA-Public Use
  Company Number: US-SA-2019SA217951

PATIENT
  Age: 56 Year
  Sex: Female

DRUGS (1)
  1. INSULIN GLARGINE/LIXISENATIDE [Suspect]
     Active Substance: INSULIN GLARGINE\LIXISENATIDE
     Indication: TYPE 2 DIABETES MELLITUS
     Dosage: 46 U AND 25 U, BID

REACTIONS (11)
  - Diabetes mellitus inadequate control [Not Recovered/Not Resolved]
  - Wrong technique in product usage process [Unknown]
  - Blood glucose increased [Unknown]
  - Circumstance or information capable of leading to medication error [Unknown]
  - Feeling abnormal [Unknown]
  - Weight decreased [Unknown]
  - Sleep disorder [Unknown]
  - Dehydration [Unknown]
  - Conjunctivitis [Unknown]
  - Device issue [Unknown]
  - Inappropriate schedule of product administration [Unknown]
